FAERS Safety Report 8848533 (Version 2)
Quarter: 2012Q4

REPORT INFORMATION
  Report Type: Report from Study
  Country: PH (occurrence: PH)
  Receive Date: 20121018
  Receipt Date: 20121226
  Transmission Date: 20130627
  Serious: Yes (Death, Hospitalization)
  Sender: FDA-Public Use
  Company Number: PH-ASTRAZENECA-2012SE78060

PATIENT
  Age: 30904 Day
  Sex: Female

DRUGS (17)
  1. AZD6140 [Suspect]
     Indication: CORONARY ARTERY DISEASE
     Route: 048
     Dates: start: 20110720
  2. ISOSORBIDE DINITRATE [Concomitant]
     Indication: ANGINA PECTORIS
     Dosage: AS REQUIRED
     Route: 048
     Dates: start: 20100728
  3. METOPROLOL [Concomitant]
     Indication: HYPERTENSION
     Route: 048
     Dates: start: 20111116
  4. AMLODIPINE [Concomitant]
     Indication: HYPERTENSION
     Route: 048
     Dates: start: 20100726
  5. LOSARTAN [Concomitant]
     Indication: HYPERTENSION
     Route: 048
  6. FERROUS SULFATE [Concomitant]
     Indication: MINERAL SUPPLEMENTATION
     Route: 048
     Dates: start: 20110112
  7. BROMAZEPAM [Concomitant]
     Indication: ANXIETY
     Dosage: AS REQUIRED
     Route: 048
     Dates: start: 20120224
  8. B-COMPLEX [Concomitant]
     Indication: DECREASED APPETITE
     Route: 048
     Dates: start: 20100809
  9. LEVETIRACETAM [Concomitant]
     Indication: PROPHYLAXIS
     Route: 048
     Dates: start: 20110112, end: 20121008
  10. SPIRONOLACTONE [Concomitant]
     Indication: HYPERTENSION
     Route: 048
     Dates: start: 20100726, end: 20110721
  11. SPIRONOLACTONE [Concomitant]
     Indication: PROPHYLAXIS
     Route: 048
     Dates: start: 20100726, end: 20110721
  12. SPIRONOLACTONE [Concomitant]
     Indication: HYPERTENSION
     Route: 048
     Dates: start: 20120222
  13. SPIRONOLACTONE [Concomitant]
     Indication: PROPHYLAXIS
     Route: 048
     Dates: start: 20120222
  14. SENNA [Concomitant]
     Indication: CONSTIPATION
     Route: 048
     Dates: start: 20111116
  15. PIZOTIFEN [Concomitant]
     Indication: DECREASED APPETITE
     Route: 048
     Dates: start: 20100809
  16. SIMVASTATIN [Concomitant]
     Indication: DYSLIPIDAEMIA
     Route: 048
     Dates: start: 20100816
  17. ASA [Concomitant]
     Route: 048
     Dates: start: 20100711

REACTIONS (1)
  - Haemorrhagic stroke [Fatal]
